FAERS Safety Report 10793584 (Version 1)
Quarter: 2015Q1

REPORT INFORMATION
  Report Type: Spontaneous
  Country: US (occurrence: None)
  Receive Date: 20150212
  Receipt Date: 20150212
  Transmission Date: 20150721
  Serious: Yes (Death, Disabling)
  Sender: FDA-Public Use
  Company Number: None

PATIENT
  Age: 75 Year
  Sex: Female
  Weight: 54.43 kg

DRUGS (1)
  1. CARAFATE [Suspect]
     Active Substance: SUCRALFATE

REACTIONS (3)
  - Dementia Alzheimer^s type [None]
  - Blood aluminium increased [None]
  - Dysgeusia [None]
